FAERS Safety Report 20505882 (Version 1)
Quarter: 2022Q1

REPORT INFORMATION
  Report Type: Spontaneous
  Country: US (occurrence: None)
  Receive Date: 20220222
  Receipt Date: 20220222
  Transmission Date: 20220423
  Serious: Yes (Other)
  Sender: FDA-Public Use
  Company Number: None

PATIENT
  Age: 28 Year
  Sex: Female

DRUGS (6)
  1. MYCOPHENOLIC ACID [Suspect]
     Active Substance: MYCOPHENOLIC ACID
     Indication: Renal transplant
     Dosage: FREQUENCY : TWICE A DAY;?
     Route: 048
     Dates: start: 202002
  2. MAGNESIUM [Concomitant]
     Active Substance: MAGNESIUM
  3. METOPROLOL TARTRATE [Suspect]
     Active Substance: METOPROLOL TARTRATE
  4. PREDNISONE [Concomitant]
     Active Substance: PREDNISONE
  5. TACROLIMUS [Concomitant]
     Active Substance: TACROLIMUS
  6. METOPROLOL [Concomitant]
     Active Substance: METOPROLOL

REACTIONS (1)
  - Alopecia [None]

NARRATIVE: CASE EVENT DATE: 20220201
